FAERS Safety Report 22273447 (Version 1)
Quarter: 2023Q2

REPORT INFORMATION
  Report Type: Spontaneous
  Country: JP (occurrence: JP)
  Receive Date: 20230502
  Receipt Date: 20230502
  Transmission Date: 20230721
  Serious: Yes (Hospitalization, Other)
  Sender: FDA-Public Use
  Company Number: JP-GLAXOSMITHKLINE-JP2023JPN015950

PATIENT

DRUGS (7)
  1. DAPRODUSTAT [Suspect]
     Active Substance: DAPRODUSTAT
     Dosage: 2 MG, QD
     Route: 048
     Dates: end: 20230203
  2. INDAPAMIDE [Concomitant]
     Active Substance: INDAPAMIDE
     Dosage: 2 MG, QD
     Dates: start: 20230119, end: 20230203
  3. AZOSEMIDE [Concomitant]
     Active Substance: AZOSEMIDE
     Dosage: 30 MG
     Dates: end: 20230121
  4. SODIUM FERROUS CITRATE [Concomitant]
     Active Substance: SODIUM FERROUS CITRATE
     Dosage: 50 MG, QD
  5. FAMOTIDINE [Concomitant]
     Active Substance: FAMOTIDINE
     Dosage: 1 MG, QD
  6. DIETARY SUPPLEMENT\PROBIOTICS [Concomitant]
     Active Substance: DIETARY SUPPLEMENT\PROBIOTICS NOS
     Dosage: 1 DF, QD
  7. ESAXERENONE [Concomitant]
     Active Substance: ESAXERENONE
     Dosage: UNK
     Dates: end: 20230119

REACTIONS (3)
  - Lumbar vertebral fracture [Unknown]
  - Fibrin D dimer increased [Recovered/Resolved]
  - Gait disturbance [Unknown]

NARRATIVE: CASE EVENT DATE: 20230130
